FAERS Safety Report 4398869-2 (Version None)
Quarter: 2004Q2

REPORT INFORMATION
  Report Type: 
  Country: None (occurrence: None)
  Receive Date: 20040621
  Receipt Date: 20040213
  Transmission Date: 20050107
  Serious: Yes (Death)
  Sender: FDA-Public Use
  Company Number: USA-2003-0007319

PATIENT
  Age: 42 Year
  Sex: Female
  Weight: 90.2 kg

DRUGS (5)
  1. OXYCONTIN [Suspect]
     Dosage: 40 MG
  2. COCAINE (COCAINE) [Suspect]
  3. FLUOXETINE [Suspect]
  4. OLANZAPINE [Suspect]
  5. SALMETEROL (SALMETEROL) [Suspect]

REACTIONS (2)
  - ACCIDENTAL OVERDOSE [None]
  - DRUG ABUSER [None]
